FAERS Safety Report 4438916-2 (Version None)
Quarter: 2004Q3

REPORT INFORMATION
  Report Type: 
  Country: None (occurrence: None)
  Receive Date: 20040831
  Receipt Date: 20040823
  Transmission Date: 20050211
  Serious: Yes (Hospitalization, Other)
  Sender: FDA-Public Use
  Company Number: KII-2004-0013184

PATIENT
  Age: 48 Year
  Sex: Male

DRUGS (6)
  1. THEOPHYLLINE [Suspect]
     Indication: ASTHMA
  2. OXYCONTIN [Suspect]
  3. MORPHINE SULFATE [Suspect]
     Indication: PAIN
     Dosage: ORAL
     Route: 048
  4. PHENOBARBITAL SODIUM 100MG CAP [Suspect]
     Indication: ASTHMA
     Dosage: ORAL
     Route: 048
  5. EPHEDRA (EPHEDRA) [Suspect]
     Indication: ASTHMA
  6. BENZODIAZEPINES DERIVATIVES [Suspect]

REACTIONS (14)
  - BRADYCARDIA [None]
  - CONFUSIONAL STATE [None]
  - DIZZINESS [None]
  - DYSARTHRIA [None]
  - EYE ROLLING [None]
  - FALL [None]
  - INSOMNIA [None]
  - MEMORY IMPAIRMENT [None]
  - MIOSIS [None]
  - MULTIPLE DRUG OVERDOSE [None]
  - ORTHOSTATIC HYPOTENSION [None]
  - POLYSUBSTANCE ABUSE [None]
  - SOMNOLENCE [None]
  - SYNCOPE VASOVAGAL [None]
